FAERS Safety Report 6037690-6 (Version None)
Quarter: 2009Q1

REPORT INFORMATION
  Report Type: 
  Country: None (occurrence: None)
  Receive Date: 20090114
  Receipt Date: 20090105
  Transmission Date: 20090719
  Serious: Yes (Hospitalization, Other)
  Sender: FDA-Public Use
  Company Number: US-AMGEN-US326957

PATIENT
  Age: 19 Year
  Sex: Female

DRUGS (8)
  1. NPLATE [Suspect]
     Indication: IDIOPATHIC THROMBOCYTOPENIC PURPURA
     Dates: start: 20081105, end: 20081226
  2. PLAQUENIL [Concomitant]
  3. APAP TAB [Concomitant]
  4. PROMETHAZINE [Concomitant]
  5. CETUXIMAB [Concomitant]
  6. PREDNISONE TAB [Concomitant]
  7. NIFEDIPINE [Concomitant]
  8. CITALOPRAM HYDROBROMIDE [Concomitant]

REACTIONS (8)
  - ABDOMINAL PAIN [None]
  - DIARRHOEA [None]
  - NAUSEA [None]
  - PELVIC FLUID COLLECTION [None]
  - PYREXIA [None]
  - RENAL FAILURE ACUTE [None]
  - THROMBOTIC MICROANGIOPATHY [None]
  - VOMITING [None]
